FAERS Safety Report 25164607 (Version 1)
Quarter: 2025Q2

REPORT INFORMATION
  Report Type: Spontaneous
  Country: US (occurrence: US)
  Receive Date: 20250406
  Receipt Date: 20250406
  Transmission Date: 20250717
  Serious: Yes (Other)
  Sender: UROGEN PHARMA
  Company Number: US-UROGEN PHARMA LTD.-2025-UGN-000049

PATIENT

DRUGS (6)
  1. JELMYTO [Suspect]
     Active Substance: MITOMYCIN
     Indication: Product used for unknown indication
  2. JELMYTO [Suspect]
     Active Substance: MITOMYCIN
  3. JELMYTO [Suspect]
     Active Substance: MITOMYCIN
  4. JELMYTO [Suspect]
     Active Substance: MITOMYCIN
  5. JELMYTO [Suspect]
     Active Substance: MITOMYCIN
  6. JELMYTO [Suspect]
     Active Substance: MITOMYCIN

REACTIONS (2)
  - Bladder neoplasm [Unknown]
  - Ureteral neoplasm [Unknown]
